FAERS Safety Report 24321207 (Version 1)
Quarter: 2024Q3

REPORT INFORMATION
  Report Type: Spontaneous
  Country: US (occurrence: US)
  Receive Date: 20240916
  Receipt Date: 20240916
  Transmission Date: 20241016
  Serious: Yes (Death, Hospitalization, Other)
  Sender: NOVO NORDISK
  Company Number: US-NOVOPROD-1279216

PATIENT
  Age: 82 Year
  Sex: Male

DRUGS (2)
  1. LEVEMIR [Suspect]
     Active Substance: INSULIN DETEMIR
     Indication: Type 2 diabetes mellitus
     Dosage: 25 IU, BID (MORNING AND EVENING)
     Route: 058
     Dates: start: 20140101
  2. PLAVIX [Concomitant]
     Active Substance: CLOPIDOGREL BISULFATE
     Indication: Cardiac disorder
     Dosage: UNK

REACTIONS (6)
  - Diabetic complication [Fatal]
  - End stage renal disease [Fatal]
  - Cardiac failure [Fatal]
  - Chronic kidney disease [Unknown]
  - Atrial fibrillation [Unknown]
  - COVID-19 [Unknown]

NARRATIVE: CASE EVENT DATE: 20180101
